FAERS Safety Report 9916167 (Version 1)
Quarter: 2014Q1

REPORT INFORMATION
  Report Type: Spontaneous
  Country: IT (occurrence: IT)
  Receive Date: 20140221
  Receipt Date: 20140221
  Transmission Date: 20141002
  Serious: Yes (Hospitalization)
  Sender: FDA-Public Use
  Company Number: IT-TEVA-463315ISR

PATIENT
  Age: 69 Year
  Sex: Female
  Weight: 70 kg

DRUGS (5)
  1. CALCIO LEVOFOLINATO TEVA [Suspect]
     Indication: COLON CANCER METASTATIC
     Dosage: 100 MICROGRAM/M2 DAILY; POWDER FOR SOLUTION FOR INTRAVENOUS INFUSION
     Route: 042
     Dates: start: 20140210, end: 20140210
  2. OXALIPLATINO TEVA [Suspect]
     Indication: COLON CANCER METASTATIC
     Dosage: 85 MG/M2 DAILY;
     Route: 042
     Dates: start: 20140210, end: 20140210
  3. SOLDESAM [Concomitant]
     Indication: PREMEDICATION
     Dosage: 8 MILLIGRAM DAILY;
  4. ZOFRAN [Concomitant]
     Dosage: 1 VIAL
  5. RANIDIL [Concomitant]
     Dosage: 1 VIAL

REACTIONS (2)
  - Electrocardiogram abnormal [Recovered/Resolved]
  - Syncope [Recovered/Resolved]
